FAERS Safety Report 12924538 (Version 2)
Quarter: 2017Q2

REPORT INFORMATION
  Report Type: Spontaneous
  Country: CN (occurrence: CN)
  Receive Date: 20161109
  Receipt Date: 20170406
  Transmission Date: 20170830
  Serious: Yes (Other)
  Sender: FDA-Public Use
  Company Number: CN-BAYER-2016-211806

PATIENT
  Weight: 55 kg

DRUGS (1)
  1. KOGENATE FS [Suspect]
     Active Substance: ANTIHEMOPHILIC FACTOR, HUMAN RECOMBINANT
     Indication: HAEMORRHAGE PROPHYLAXIS

REACTIONS (4)
  - Product quality issue [None]
  - Out of specification test results [None]
  - Drug ineffective [None]
  - Haemorrhage [None]
